FAERS Safety Report 18551313 (Version 4)
Quarter: 2021Q1

REPORT INFORMATION
  Report Type: Spontaneous
  Country: US (occurrence: US)
  Receive Date: 20201126
  Receipt Date: 20210119
  Transmission Date: 20210419
  Serious: Yes (Other)
  Sender: FDA-Public Use
  Company Number: US-ASTRAZENECA-2020SF57157

PATIENT
  Age: 68 Year
  Sex: Male
  Weight: 111.6 kg

DRUGS (3)
  1. BYDUREON BCISE [Suspect]
     Active Substance: EXENATIDE
     Indication: DIABETES MELLITUS
     Route: 058
     Dates: start: 20201015
  2. METFORMIN [Concomitant]
     Active Substance: METFORMIN HYDROCHLORIDE
     Route: 065
  3. BYDUREON [Suspect]
     Active Substance: EXENATIDE
     Indication: DIABETES MELLITUS
     Route: 058
     Dates: end: 202009

REACTIONS (6)
  - Product administration error [Unknown]
  - Device leakage [Unknown]
  - Intentional product misuse [Unknown]
  - Deafness [Not Recovered/Not Resolved]
  - Incorrect dose administered [Unknown]
  - Device failure [Unknown]
